FAERS Safety Report 23951312 (Version 2)
Quarter: 2024Q4

REPORT INFORMATION
  Report Type: Spontaneous
  Country: CA (occurrence: CA)
  Receive Date: 20240607
  Receipt Date: 20241217
  Transmission Date: 20250115
  Serious: Yes (Other)
  Sender: PFIZER
  Company Number: CA-PFIZER INC-202300184950

PATIENT
  Age: 72 Year
  Sex: Male
  Weight: 85 kg

DRUGS (11)
  1. RUXIENCE [Suspect]
     Active Substance: RITUXIMAB-PVVR
     Indication: Granulomatosis with polyangiitis
     Dosage: 750 MG/WEEK 1 RECEIVED IN HOSPITAL AS RITUXAN
     Route: 042
     Dates: start: 20230516, end: 20230516
  2. RUXIENCE [Suspect]
     Active Substance: RITUXIMAB-PVVR
     Dosage: 756 MG, WEEKLY FOR 4 WEEKS THEN 500MG Q 6 MONTHS
     Route: 042
     Dates: start: 20230523
  3. RUXIENCE [Suspect]
     Active Substance: RITUXIMAB-PVVR
     Dosage: 756 MG, WEEKLY FOR 4 WEEKS THEN 500MG Q 6 MONTHS
     Route: 042
     Dates: start: 20230530
  4. RUXIENCE [Suspect]
     Active Substance: RITUXIMAB-PVVR
     Dosage: 756 MG, WEEKLY FOR 4 WEEKS THEN 500MG Q 6 MONTHS
     Route: 042
     Dates: start: 20230530
  5. RUXIENCE [Suspect]
     Active Substance: RITUXIMAB-PVVR
     Dosage: WEEKLY FOR 4 WEEKS THEN 500MG Q 6 MONTHS
     Route: 042
     Dates: start: 20231205
  6. RUXIENCE [Suspect]
     Active Substance: RITUXIMAB-PVVR
     Dosage: 500MG AFTER 26 WEEKS AND 2 DAYS
     Route: 042
     Dates: start: 20240604
  7. RUXIENCE [Suspect]
     Active Substance: RITUXIMAB-PVVR
     Dosage: 500 MG,27 WEEKS (PRESCRIBED 500MG Q 6 MONTHS)
     Route: 042
     Dates: start: 20241211
  8. AMLODIPINE [Concomitant]
     Active Substance: AMLODIPINE BESYLATE
     Dosage: 50 MG
  9. PREDNISONE [Concomitant]
     Active Substance: PREDNISONE
     Dosage: UNK
  10. SULFADIAZINE\TRIMETHOPRIM [Concomitant]
     Active Substance: SULFADIAZINE\TRIMETHOPRIM
     Dosage: UNK
  11. CHOLECALCIFEROL [Concomitant]
     Active Substance: CHOLECALCIFEROL
     Dosage: UNK

REACTIONS (8)
  - Oxygen saturation decreased [Unknown]
  - Off label use [Unknown]
  - Off label use [Unknown]
  - Off label use [Unknown]
  - Intentional product use issue [Unknown]
  - Incorrect product administration duration [Unknown]
  - Inappropriate schedule of product administration [Unknown]
  - Arthralgia [Not Recovered/Not Resolved]

NARRATIVE: CASE EVENT DATE: 20230530
